FAERS Safety Report 16895904 (Version 1)
Quarter: 2019Q4

REPORT INFORMATION
  Report Type: Spontaneous
  Country: US (occurrence: US)
  Receive Date: 20191008
  Receipt Date: 20191008
  Transmission Date: 20200122
  Serious: No
  Sender: FDA-Public Use
  Company Number: US-BAUSCH-BL-2019-054846

PATIENT

DRUGS (2)
  1. LUMIFY [Suspect]
     Active Substance: BRIMONIDINE TARTRATE
     Indication: PRODUCT USED FOR UNKNOWN INDICATION
     Dosage: USED EYE DROPS SINCE THE 60S
     Route: 065
  2. LUMIFY [Suspect]
     Active Substance: BRIMONIDINE TARTRATE
     Route: 065

REACTIONS (6)
  - Eye irritation [Recovering/Resolving]
  - Ocular hyperaemia [Unknown]
  - Product dropper issue [Unknown]
  - Eye disorder [Unknown]
  - Eye discharge [Unknown]
  - Therapeutic product effect decreased [Unknown]
